FAERS Safety Report 10542117 (Version 1)
Quarter: 2014Q4

REPORT INFORMATION
  Report Type: Report from Study
  Country: BR (occurrence: BR)
  Receive Date: 20141024
  Receipt Date: 20141024
  Transmission Date: 20150529
  Serious: Yes (Hospitalization, Other)
  Sender: FDA-Public Use
  Company Number: BR-B.I. PHARMACEUTICALS,INC./RIDGEFIELD-2014-BI-50331BR

PATIENT
  Age: 48 Year
  Sex: Female
  Weight: 55 kg

DRUGS (5)
  1. PRADAXA [Suspect]
     Active Substance: DABIGATRAN ETEXILATE MESYLATE
     Indication: CEREBROVASCULAR ACCIDENT PROPHYLAXIS
  2. CELOZEC [Concomitant]
     Indication: ARRHYTHMIA
     Dosage: 50 MG
     Route: 048
     Dates: start: 2013
  3. PRADAXA [Suspect]
     Active Substance: DABIGATRAN ETEXILATE MESYLATE
     Indication: ARRHYTHMIA
     Dosage: 300 MG
     Route: 048
     Dates: start: 201403, end: 20140426
  4. ENALAPRIL [Concomitant]
     Active Substance: ENALAPRIL
     Indication: HYPERTENSION
     Dosage: 20 MG
     Route: 048
     Dates: start: 201404
  5. EUTHIROX [Concomitant]
     Indication: THYROID DISORDER
     Dosage: 25 MG
     Route: 048
     Dates: start: 201402

REACTIONS (5)
  - Ischaemic stroke [Recovered/Resolved with Sequelae]
  - Hemiparesis [Not Recovered/Not Resolved]
  - Paresis [Not Recovered/Not Resolved]
  - Movement disorder [Not Recovered/Not Resolved]
  - Drug ineffective [Unknown]

NARRATIVE: CASE EVENT DATE: 20140426
